FAERS Safety Report 11010641 (Version 1)
Quarter: 2015Q2

REPORT INFORMATION
  Report Type: Spontaneous
  Country: BR (occurrence: BR)
  Receive Date: 20150410
  Receipt Date: 20150410
  Transmission Date: 20150821
  Serious: Yes (Hospitalization, Other)
  Sender: FDA-Public Use
  Company Number: BR-ELI_LILLY_AND_COMPANY-BR201504000223

PATIENT
  Age: 59 Year
  Sex: Male
  Weight: 74 kg

DRUGS (2)
  1. AXIRON [Suspect]
     Active Substance: TESTOSTERONE
     Indication: BLOOD TESTOSTERONE DECREASED
     Dosage: 30 MG, QD
     Route: 061
     Dates: start: 20150307, end: 20150316
  2. AXIRON [Suspect]
     Active Substance: TESTOSTERONE
     Dosage: 30 MG, QD
     Route: 061
     Dates: end: 20150328

REACTIONS (5)
  - Panic disorder [Recovering/Resolving]
  - Malaise [Recovering/Resolving]
  - Feeling hot [Recovering/Resolving]
  - Abdominal pain upper [Recovering/Resolving]
  - Hiatus hernia [Unknown]

NARRATIVE: CASE EVENT DATE: 20150310
